FAERS Safety Report 9187290 (Version 1)
Quarter: 2013Q1

REPORT INFORMATION
  Report Type: Spontaneous
  Country: US (occurrence: US)
  Receive Date: 20130325
  Receipt Date: 20130325
  Transmission Date: 20140127
  Serious: Yes (Other)
  Sender: FDA-Public Use
  Company Number: US-FRI-1000043673

PATIENT
  Sex: 0

DRUGS (1)
  1. TUDORZA PRESSAIR [Suspect]

REACTIONS (3)
  - Blood pressure decreased [Unknown]
  - Syncope [Unknown]
  - Contusion [Unknown]
